FAERS Safety Report 17502728 (Version 1)
Quarter: 2020Q1

REPORT INFORMATION
  Report Type: Report from Study
  Country: US (occurrence: US)
  Receive Date: 20200305
  Receipt Date: 20200305
  Transmission Date: 20200409
  Serious: Yes (Hospitalization)
  Sender: FDA-Public Use
  Company Number: US-EISAI MEDICAL RESEARCH-EC-2019-067290

PATIENT
  Age: 61 Year
  Sex: Female
  Weight: 65 kg

DRUGS (21)
  1. MIRTAZAPINE. [Concomitant]
     Active Substance: MIRTAZAPINE
  2. VITAMIN D2 [Concomitant]
     Active Substance: ERGOCALCIFEROL
  3. LEVOTHYROXINE. [Concomitant]
     Active Substance: LEVOTHYROXINE
  4. PREDNISONE. [Concomitant]
     Active Substance: PREDNISONE
  5. AFINITOR [Suspect]
     Active Substance: EVEROLIMUS
     Indication: RENAL CANCER
     Dosage: DOSE AND FREQUENCY UNKNOWN
     Route: 048
     Dates: end: 201912
  6. PANTOPRAZOLE [Concomitant]
     Active Substance: PANTOPRAZOLE
  7. TUMS [Concomitant]
     Active Substance: CALCIUM CARBONATE
  8. LENVIMA [Suspect]
     Active Substance: LENVATINIB
     Dosage: DOSE UNKNOWN - TITRATING UP TO FULL DOSE
     Route: 048
     Dates: start: 20191230
  9. AZITHROMYCIN ANHYDROUS. [Concomitant]
     Active Substance: AZITHROMYCIN ANHYDROUS
  10. REMERON [Concomitant]
     Active Substance: MIRTAZAPINE
  11. AFINITOR [Suspect]
     Active Substance: EVEROLIMUS
     Dosage: DOSE AND FREQUENCY UNKNOWN
     Route: 048
     Dates: start: 201912, end: 20191229
  12. AFINITOR [Suspect]
     Active Substance: EVEROLIMUS
     Dosage: DOSE AND FREQUENCY UNKNOWN
     Route: 048
     Dates: start: 20191230
  13. MAGNESIUM [Concomitant]
     Active Substance: MAGNESIUM
  14. LENVIMA [Suspect]
     Active Substance: LENVATINIB
     Indication: RENAL CANCER
     Route: 048
     Dates: start: 20191210, end: 201912
  15. LENVIMA [Suspect]
     Active Substance: LENVATINIB
     Dosage: DOSE UNKNOWN - TITRATING
     Route: 048
     Dates: start: 201912, end: 20191229
  16. BENZONATATE. [Concomitant]
     Active Substance: BENZONATATE
  17. GABAPENTIN. [Concomitant]
     Active Substance: GABAPENTIN
  18. MEGACE [Concomitant]
     Active Substance: MEGESTROL ACETATE
  19. AMOXICILLIN-CLAVULANATE [Concomitant]
     Active Substance: AMOXICILLIN\CLAVULANIC ACID
  20. CARVEDILOL. [Concomitant]
     Active Substance: CARVEDILOL
  21. RANITIDINE. [Concomitant]
     Active Substance: RANITIDINE

REACTIONS (14)
  - Weight decreased [Not Recovered/Not Resolved]
  - Musculoskeletal stiffness [Unknown]
  - Blood pressure increased [Unknown]
  - Decreased appetite [Not Recovered/Not Resolved]
  - Fatigue [Unknown]
  - Musculoskeletal pain [Unknown]
  - Pruritus [Unknown]
  - Blood pressure fluctuation [Unknown]
  - Asthenia [Unknown]
  - Myalgia [Unknown]
  - Abdominal pain upper [Unknown]
  - Dyspnoea [Unknown]
  - Pain in extremity [Unknown]
  - Epistaxis [Unknown]

NARRATIVE: CASE EVENT DATE: 201912
